FAERS Safety Report 12683054 (Version 1)
Quarter: 2016Q3

REPORT INFORMATION
  Report Type: Spontaneous
  Country: US (occurrence: None)
  Receive Date: 20160824
  Receipt Date: 20160824
  Transmission Date: 20161109
  Serious: Yes (Other)
  Sender: FDA-Public Use
  Company Number: None

PATIENT
  Age: 30 Year
  Sex: Female
  Weight: 102.51 kg

DRUGS (5)
  1. PROZAC [Concomitant]
     Active Substance: FLUOXETINE HYDROCHLORIDE
  2. WELLBUTRIN [Suspect]
     Active Substance: BUPROPION HYDROCHLORIDE
     Indication: DEPRESSION
     Dosage: 1 TABLET (S) IN THE MORNING TAKEN BY MOUTH
     Route: 048
     Dates: start: 20160719, end: 20160805
  3. VERAPAMIL CR [Concomitant]
  4. BARIATRIC VITAMIN [Concomitant]
  5. FISH OIL [Concomitant]
     Active Substance: FISH OIL

REACTIONS (1)
  - Muscle twitching [None]

NARRATIVE: CASE EVENT DATE: 20160803
